FAERS Safety Report 14025716 (Version 1)
Quarter: 2017Q3

REPORT INFORMATION
  Report Type: Spontaneous
  Country: EG (occurrence: EG)
  Receive Date: 20170929
  Receipt Date: 20170929
  Transmission Date: 20171128
  Serious: Yes (Disabling)
  Sender: FDA-Public Use
  Company Number: EG-ELI_LILLY_AND_COMPANY-EG201709007639

PATIENT
  Age: 42 Year
  Sex: Female

DRUGS (1)
  1. CYMBALTA [Suspect]
     Active Substance: DULOXETINE HYDROCHLORIDE
     Indication: SOMATIC SYMPTOM DISORDER
     Dosage: 120 MG, UNKNOWN
     Route: 065

REACTIONS (5)
  - Hyperprolactinaemia [Unknown]
  - Off label use [Unknown]
  - Amenorrhoea [Unknown]
  - Galactorrhoea [Unknown]
  - Breast enlargement [Unknown]
